FAERS Safety Report 9698062 (Version 3)
Quarter: 2014Q2

REPORT INFORMATION
  Report Type: Spontaneous
  Country: US (occurrence: US)
  Receive Date: 20131120
  Receipt Date: 20140612
  Transmission Date: 20141212
  Serious: Yes (Life-Threatening, Hospitalization)
  Sender: FDA-Public Use
  Company Number: US-BAYER-2013-139418

PATIENT
  Age: 46 Year
  Sex: Female

DRUGS (1)
  1. MIRENA [Suspect]
     Indication: CONTRACEPTION
     Dosage: 20 MCG/24HR, CONT
     Route: 015
     Dates: start: 200811, end: 201304

REACTIONS (9)
  - Pelvic inflammatory disease [None]
  - Injury [None]
  - Emotional distress [None]
  - Abdominal pain lower [None]
  - General physical health deterioration [None]
  - Anxiety [None]
  - Anhedonia [None]
  - Menometrorrhagia [None]
  - Pelvic pain [None]
